FAERS Safety Report 17397477 (Version 1)
Quarter: 2020Q1

REPORT INFORMATION
  Report Type: Spontaneous
  Country: GB (occurrence: GB)
  Receive Date: 20200210
  Receipt Date: 20200210
  Transmission Date: 20200409
  Serious: Yes (Hospitalization, Disabling, Other)
  Sender: FDA-Public Use
  Company Number: GB-BAYER-2020-015545

PATIENT
  Age: 32 Year
  Sex: Female
  Weight: 54 kg

DRUGS (2)
  1. PREDNISOLONE. [Concomitant]
     Active Substance: PREDNISOLONE
  2. CIPROFLOXACIN. [Suspect]
     Active Substance: CIPROFLOXACIN
     Indication: SKIN INFECTION
     Dosage: 20 ML, QD
     Route: 048
     Dates: start: 20191231, end: 20200101

REACTIONS (10)
  - Diplopia [Unknown]
  - Mouth haemorrhage [Unknown]
  - Tongue haemorrhage [Unknown]
  - Tendon pain [Unknown]
  - Conversion disorder [Unknown]
  - Pruritus [Unknown]
  - Angina bullosa haemorrhagica [Unknown]
  - Muscle twitching [Unknown]
  - Neuralgia [Unknown]
  - Arthralgia [Unknown]

NARRATIVE: CASE EVENT DATE: 20191231
